FAERS Safety Report 17740239 (Version 1)
Quarter: 2020Q2

REPORT INFORMATION
  Report Type: Spontaneous
  Country: US (occurrence: US)
  Receive Date: 20200502
  Receipt Date: 20200502
  Transmission Date: 20200714
  Serious: No
  Sender: FDA-Public Use
  Company Number: None

PATIENT
  Age: 36 Year
  Sex: Female
  Weight: 65.32 kg

DRUGS (1)
  1. SAXENDA [Suspect]
     Active Substance: LIRAGLUTIDE

REACTIONS (6)
  - Injection site reaction [None]
  - Injection site erythema [None]
  - Injection site scab [None]
  - Injection site swelling [None]
  - Injection site bruising [None]
  - Injection site pruritus [None]

NARRATIVE: CASE EVENT DATE: 20200401
